FAERS Safety Report 9626820 (Version 1)
Quarter: 2013Q4

REPORT INFORMATION
  Report Type: Spontaneous
  Country: US (occurrence: None)
  Receive Date: 20131011
  Receipt Date: 20131011
  Transmission Date: 20140711
  Serious: Yes (Death)
  Sender: FDA-Public Use
  Company Number: 2013AP008558

PATIENT
  Age: 67 Year
  Sex: Male

DRUGS (6)
  1. ACETAMINOPHEN [Suspect]
     Route: 048
  2. AMLODIPINE BESYLATE TABLETS [Suspect]
     Route: 048
  3. DILTIAZEM [Suspect]
     Route: 048
  4. SERTRALINE HYDROCHLORIDE TABLETS [Concomitant]
     Route: 048
  5. LABETALOL HYDROCHLORIDE [Suspect]
     Route: 048
  6. METOPROLOL [Suspect]
     Route: 048

REACTIONS (2)
  - Completed suicide [None]
  - Incorrect dose administered [None]
